FAERS Safety Report 6942431-1 (Version None)
Quarter: 2010Q3

REPORT INFORMATION
  Report Type: 
  Country: None (occurrence: None)
  Receive Date: 20100826
  Receipt Date: 20100812
  Transmission Date: 20110219
  Serious: Yes (Other)
  Sender: FDA-Public Use
  Company Number: PHHY2010CA53429

PATIENT
  Sex: Female

DRUGS (5)
  1. ZOLEDRONIC [Suspect]
     Indication: OSTEOPOROSIS
     Dosage: 5MG/100ML
     Route: 042
     Dates: start: 20090716
  2. CALCIUM [Concomitant]
  3. VITAMIN D [Concomitant]
  4. BUSCOPAN [Concomitant]
     Dosage: UNK
  5. ASCORBIC ACID [Concomitant]

REACTIONS (6)
  - ANKLE FRACTURE [None]
  - CAST APPLICATION [None]
  - FALL [None]
  - LIMB IMMOBILISATION [None]
  - PATHOLOGICAL FRACTURE [None]
  - PHYSIOTHERAPY [None]
